FAERS Safety Report 15208794 (Version 1)
Quarter: 2018Q3

REPORT INFORMATION
  Report Type: Spontaneous
  Country: FR (occurrence: FR)
  Receive Date: 20180727
  Receipt Date: 20180727
  Transmission Date: 20181010
  Serious: Yes (Other)
  Sender: FDA-Public Use
  Company Number: FR-TELIGENT, INC-IGIL20180411

PATIENT
  Age: 94 Year
  Sex: Female
  Weight: 80 kg

DRUGS (4)
  1. GENTAMICINE [Suspect]
     Active Substance: GENTAMICIN
     Indication: ARTHRITIS
     Dosage: 240 MG, IN TOTAL
     Route: 042
     Dates: start: 20180614
  2. CIFLOX [Suspect]
     Active Substance: CIPROFLOXACIN
     Indication: ARTHRITIS
     Dosage: 1 GRAM
     Route: 048
     Dates: start: 20180619, end: 20180621
  3. CEFTAZIDIME. [Suspect]
     Active Substance: CEFTAZIDIME
     Indication: ARTHRITIS
     Dosage: 6 GRAMS
     Route: 042
     Dates: start: 20180619, end: 20180622
  4. CEFAZOLINE [Suspect]
     Active Substance: CEFAZOLIN SODIUM
     Indication: ARTHRITIS
     Dosage: 8 GRAMS
     Route: 041
     Dates: start: 20180614, end: 20180618

REACTIONS (2)
  - Product use in unapproved indication [None]
  - Neutropenia [Not Recovered/Not Resolved]

NARRATIVE: CASE EVENT DATE: 20180618
